FAERS Safety Report 9272542 (Version 1)
Quarter: 2013Q2

REPORT INFORMATION
  Report Type: Spontaneous
  Country: FR (occurrence: FR)
  Receive Date: 20130506
  Receipt Date: 20130506
  Transmission Date: 20140414
  Serious: Yes (Disabling)
  Sender: FDA-Public Use
  Company Number: FR-GLAXOSMITHKLINE-B0870469A

PATIENT
  Sex: Female
  Weight: 55 kg

DRUGS (3)
  1. TROBALT [Suspect]
     Indication: EPILEPSY
     Route: 048
     Dates: start: 20121122, end: 20121207
  2. TEGRETOL [Concomitant]
     Indication: EPILEPSY
     Dosage: 400MG TWICE PER DAY
     Route: 048
     Dates: start: 20121122
  3. VIMPAT [Concomitant]
     Indication: EPILEPSY
     Dosage: 300MG TWICE PER DAY
     Route: 048
     Dates: start: 20121122

REACTIONS (5)
  - Aggression [Recovered/Resolved]
  - Mental disorder [Recovered/Resolved]
  - Abnormal behaviour [Recovered/Resolved]
  - Irritability [Recovered/Resolved]
  - Emotional disorder [Recovered/Resolved]
